FAERS Safety Report 23111094 (Version 1)
Quarter: 2023Q4

REPORT INFORMATION
  Report Type: Spontaneous
  Country: CH (occurrence: CH)
  Receive Date: 20231026
  Receipt Date: 20231026
  Transmission Date: 20240110
  Serious: Yes (Other)
  Sender: FDA-Public Use
  Company Number: CH-JAZZ-2020-CH-016936

PATIENT
  Age: 43 Year
  Sex: Male

DRUGS (1)
  1. DEFIBROTIDE SODIUM [Suspect]
     Active Substance: DEFIBROTIDE SODIUM
     Indication: Product used for unknown indication
     Dosage: UNKNOWN THERAPY DETAILS

REACTIONS (2)
  - Venoocclusive disease [Unknown]
  - Off label use [Unknown]
